FAERS Safety Report 6833047-6 (Version None)
Quarter: 2010Q3

REPORT INFORMATION
  Report Type: 
  Country: None (occurrence: None)
  Receive Date: 20100712
  Receipt Date: 20100603
  Transmission Date: 20110219
  Serious: No
  Sender: FDA-Public Use
  Company Number: US-BIOGENIDEC-2010BI005750

PATIENT
  Sex: Female

DRUGS (1)
  1. TYSABRI [Suspect]
     Indication: MULTIPLE SCLEROSIS
     Route: 042
     Dates: start: 20070720

REACTIONS (14)
  - CYSTITIS [None]
  - DIZZINESS [None]
  - DYSURIA [None]
  - FATIGUE [None]
  - FEELING ABNORMAL [None]
  - FOREIGN BODY [None]
  - FUNGAL INFECTION [None]
  - HERPES SIMPLEX [None]
  - MALAISE [None]
  - MICTURITION URGENCY [None]
  - NASAL CAVITY MASS [None]
  - NASAL NEOPLASM [None]
  - NAUSEA [None]
  - STRESS [None]
